FAERS Safety Report 4320630-5 (Version None)
Quarter: 2004Q1

REPORT INFORMATION
  Report Type: 
  Country: None (occurrence: None)
  Receive Date: 20040315
  Receipt Date: 20030422
  Transmission Date: 20041129
  Serious: Yes (Hospitalization)
  Sender: FDA-Public Use
  Company Number: USA030331104

PATIENT
  Age: 57 Year
  Sex: Female

DRUGS (2)
  1. GEMZAR [Suspect]
     Indication: LUNG NEOPLASM MALIGNANT
     Dosage: 1200 MG/M2
  2. NAVELBINE [Concomitant]

REACTIONS (4)
  - BLOOD LACTATE DEHYDROGENASE INCREASED [None]
  - LUNG INFILTRATION [None]
  - PULMONARY TOXICITY [None]
  - WHITE BLOOD CELL COUNT INCREASED [None]
